FAERS Safety Report 24129497 (Version 2)
Quarter: 2024Q3

REPORT INFORMATION
  Report Type: Spontaneous
  Country: JP (occurrence: JP)
  Receive Date: 20240723
  Receipt Date: 20240801
  Transmission Date: 20241016
  Serious: Yes (Death, Other)
  Sender: GLAXOSMITHKLINE
  Company Number: JP-GSKJP-JP2024JPN089666AA

PATIENT

DRUGS (2)
  1. DAPRODUSTAT [Suspect]
     Active Substance: DAPRODUSTAT
     Indication: Nephrogenic anaemia
     Dosage: UNK
     Route: 048
  2. DAPRODUSTAT [Suspect]
     Active Substance: DAPRODUSTAT
     Dosage: 12 MG, 1D
     Route: 048
     Dates: start: 202306

REACTIONS (5)
  - Pneumonia aspiration [Fatal]
  - Renal impairment [Unknown]
  - Nephrogenic anaemia [Unknown]
  - Disease progression [Unknown]
  - Drug ineffective [Unknown]
